FAERS Safety Report 6295560-2 (Version None)
Quarter: 2009Q3

REPORT INFORMATION
  Report Type: 
  Country: None (occurrence: None)
  Receive Date: 20090731
  Receipt Date: 20020815
  Transmission Date: 20100115
  Serious: Yes (Death)
  Sender: FDA-Public Use
  Company Number: 2009008853

PATIENT
  Age: 60 Year
  Sex: Male

DRUGS (6)
  1. ACTIQ [Suspect]
     Dosage: BU
     Route: 002
  2. NEURONTIN [Concomitant]
  3. PROTONIX [Concomitant]
  4. MOTRIN [Concomitant]
  5. REMERON [Concomitant]
  6. OXYCONTIN [Concomitant]

REACTIONS (3)
  - ARTERIOSCLEROSIS CORONARY ARTERY [None]
  - DRUG DETOXIFICATION [None]
  - EMPHYSEMA [None]
